FAERS Safety Report 5822930-6 (Version None)
Quarter: 2008Q3

REPORT INFORMATION
  Report Type: 
  Country: None (occurrence: None)
  Receive Date: 20080724
  Receipt Date: 20080724
  Transmission Date: 20090109
  Serious: Yes (Disabling)
  Sender: FDA-Public Use
  Company Number: None

PATIENT
  Sex: Female
  Weight: 52.1637 kg

DRUGS (1)
  1. BONIVA [Suspect]
     Indication: OSTEOPOROSIS
     Dosage: 1 ONCE A MONTH MOUTH SEVERAL YEARS
     Route: 048

REACTIONS (4)
  - BONE DISORDER [None]
  - GINGIVAL ATROPHY [None]
  - GINGIVAL DISORDER [None]
  - PAIN IN JAW [None]
